FAERS Safety Report 16955624 (Version 1)
Quarter: 2019Q4

REPORT INFORMATION
  Report Type: Spontaneous
  Country: US (occurrence: US)
  Receive Date: 20191023
  Receipt Date: 20191023
  Transmission Date: 20200122
  Serious: Yes (Hospitalization)
  Sender: FDA-Public Use
  Company Number: None

PATIENT
  Age: 64 Year
  Sex: Female

DRUGS (8)
  1. BREO ELLIPTA [Concomitant]
     Active Substance: FLUTICASONE FUROATE\VILANTEROL TRIFENATATE
  2. DILANTIN [Concomitant]
     Active Substance: PHENYTOIN
  3. FONDAPARINUX [Suspect]
     Active Substance: FONDAPARINUX
     Indication: TYPE 2 DIABETES MELLITUS
     Route: 058
  4. LORAZEPAM. [Concomitant]
     Active Substance: LORAZEPAM
  5. PROZAC [Concomitant]
     Active Substance: FLUOXETINE HYDROCHLORIDE
  6. PHENOBARB [Concomitant]
     Active Substance: PHENOBARBITAL SODIUM
  7. VIMPAT [Concomitant]
     Active Substance: LACOSAMIDE
  8. VITAMIN D3 [Concomitant]
     Active Substance: CHOLECALCIFEROL

REACTIONS (2)
  - Product availability issue [None]
  - Hospitalisation [None]

NARRATIVE: CASE EVENT DATE: 20191002
